FAERS Safety Report 17434055 (Version 1)
Quarter: 2020Q1

REPORT INFORMATION
  Report Type: Spontaneous
  Country: US (occurrence: US)
  Receive Date: 20200218
  Receipt Date: 20200218
  Transmission Date: 20200409
  Serious: Yes (Life-Threatening, Hospitalization)
  Sender: FDA-Public Use
  Company Number: None

PATIENT
  Age: 67 Year
  Sex: Male
  Weight: 103.5 kg

DRUGS (1)
  1. IOPAMIDOL 370 [Suspect]
     Active Substance: IOPAMIDOL
     Indication: COMPUTERISED TOMOGRAM ABDOMEN
     Dosage: ?          OTHER FREQUENCY:ONCE;?
     Route: 040
     Dates: start: 20200123, end: 20200123

REACTIONS (4)
  - Loss of consciousness [None]
  - Nausea [None]
  - Flushing [None]
  - Cardiac arrest [None]

NARRATIVE: CASE EVENT DATE: 20200123
